FAERS Safety Report 25763216 (Version 1)
Quarter: 2025Q3

REPORT INFORMATION
  Report Type: Report from Study
  Country: AU (occurrence: AU)
  Receive Date: 20250905
  Receipt Date: 20250905
  Transmission Date: 20251021
  Serious: Yes (Other)
  Sender: CELLTRION
  Company Number: AU-CELLTRION INC.-2021AU014215

PATIENT

DRUGS (3)
  1. INFLIXIMAB-DYYB [Suspect]
     Active Substance: INFLIXIMAB-DYYB
     Indication: Crohn^s disease
     Dosage: 120 MG EVERY 2 WEEKS/FORTNIGHTLY
     Route: 058
     Dates: start: 20211006, end: 20250723
  2. INFLIXIMAB-DYYB [Suspect]
     Active Substance: INFLIXIMAB-DYYB
     Indication: Colitis ulcerative
  3. STEQEYMA [Suspect]
     Active Substance: USTEKINUMAB-STBA
     Indication: Product used for unknown indication
     Dates: start: 20250827

REACTIONS (2)
  - Central nervous system lesion [Unknown]
  - Off label use [Unknown]

NARRATIVE: CASE EVENT DATE: 20211006
